FAERS Safety Report 10375104 (Version 2)
Quarter: 2018Q3

REPORT INFORMATION
  Report Type: Spontaneous
  Country: FR (occurrence: FR)
  Receive Date: 20140811
  Receipt Date: 20180821
  Transmission Date: 20181010
  Serious: Yes (Hospitalization)
  Sender: FDA-Public Use
  Company Number: FR-JNJFOC-20140804548

PATIENT
  Age: 67 Year
  Sex: Female
  Weight: 92 kg

DRUGS (15)
  1. KARDEGIC [Suspect]
     Active Substance: ASPIRIN DL-LYSINE
     Indication: PRODUCT USED FOR UNKNOWN INDICATION
     Route: 048
     Dates: end: 20140409
  2. INIPOMP [Concomitant]
     Active Substance: PANTOPRAZOLE SODIUM
     Route: 065
  3. CORDARONE [Suspect]
     Active Substance: AMIODARONE HYDROCHLORIDE
     Indication: PRODUCT USED FOR UNKNOWN INDICATION
     Route: 048
     Dates: end: 20140409
  4. ZOPHREN [Concomitant]
     Active Substance: ONDANSETRON
     Route: 065
  5. PROFENID [Concomitant]
     Active Substance: KETOPROFEN
     Route: 065
  6. LEVOTHYROX [Concomitant]
     Active Substance: LEVOTHYROXINE
     Route: 065
  7. SUPROFEN [Concomitant]
     Active Substance: SUPROFEN
     Route: 065
  8. PERFALGAN [Concomitant]
     Active Substance: ACETAMINOPHEN
     Route: 065
  9. IRBESARTAN. [Concomitant]
     Active Substance: IRBESARTAN
     Route: 065
  10. LOXEN [Concomitant]
     Route: 065
  11. SUPROFEN [Concomitant]
     Active Substance: SUPROFEN
     Route: 065
  12. FLECAINE [Concomitant]
     Active Substance: FLECAINIDE
     Route: 065
  13. XARELTO [Suspect]
     Active Substance: RIVAROXABAN
     Indication: PRODUCT USED FOR UNKNOWN INDICATION
     Route: 048
     Dates: start: 20140408, end: 20140409
  14. PRADAXA [Suspect]
     Active Substance: DABIGATRAN ETEXILATE MESYLATE
     Indication: PRODUCT USED FOR UNKNOWN INDICATION
     Route: 048
     Dates: start: 20140322, end: 20140409
  15. EUPRESSYL [Concomitant]
     Active Substance: URAPIDIL
     Route: 065

REACTIONS (6)
  - Haemorrhage [Recovering/Resolving]
  - Cardiac tamponade [Recovering/Resolving]
  - Haemorrhage [Not Recovered/Not Resolved]
  - Pericardial effusion [Not Recovered/Not Resolved]
  - Cardiac tamponade [Not Recovered/Not Resolved]
  - Pericardial effusion [Not Recovered/Not Resolved]

NARRATIVE: CASE EVENT DATE: 20140409
